FAERS Safety Report 7276692-9 (Version None)
Quarter: 2011Q1

REPORT INFORMATION
  Report Type: 
  Country: None (occurrence: None)
  Receive Date: 20110204
  Receipt Date: 20110126
  Transmission Date: 20110831
  Serious: Yes (Hospitalization)
  Sender: FDA-Public Use
  Company Number: IT-ABBOTT-06P-083-0344063-00

PATIENT
  Sex: Female

DRUGS (5)
  1. KALETRA [Suspect]
     Indication: HIV INFECTION
     Route: 048
     Dates: start: 20060628, end: 20060703
  2. FLUCONAZOLE [Concomitant]
     Indication: OESOPHAGEAL CANDIDIASIS
  3. D4T [Concomitant]
     Indication: ANTIVIRAL TREATMENT
  4. LAMIVUDINE (EPIVIR HBV) [Concomitant]
     Indication: ANTIVIRAL TREATMENT
  5. ATOVAQUONE [Concomitant]
     Indication: PROPHYLAXIS

REACTIONS (5)
  - STEVENS-JOHNSON SYNDROME [None]
  - BONE MARROW TOXICITY [None]
  - CYTOLYTIC HEPATITIS [None]
  - HEPATIC FAILURE [None]
  - RENAL FAILURE [None]
